FAERS Safety Report 16132911 (Version 1)
Quarter: 2019Q1

REPORT INFORMATION
  Report Type: Spontaneous
  Country: US (occurrence: US)
  Receive Date: 20190329
  Receipt Date: 20190329
  Transmission Date: 20190418
  Serious: Yes (Other)
  Sender: FDA-Public Use
  Company Number: US-SA-2019SA078455

PATIENT
  Sex: Male

DRUGS (2)
  1. LOVENOX [Suspect]
     Active Substance: ENOXAPARIN SODIUM
     Indication: AORTIC VALVE REPLACEMENT
     Dosage: UNK
     Route: 065
  2. WARFARIN [Suspect]
     Active Substance: WARFARIN
     Indication: AORTIC VALVE REPLACEMENT
     Route: 065

REACTIONS (5)
  - Expired product administered [Unknown]
  - Thrombosis [Recovered/Resolved]
  - Speech disorder [Recovered/Resolved]
  - Cerebrovascular accident [Recovered/Resolved]
  - Drug ineffective [Unknown]
